FAERS Safety Report 7219458-8 (Version None)
Quarter: 2011Q1

REPORT INFORMATION
  Report Type: 
  Country: None (occurrence: None)
  Receive Date: 20110111
  Receipt Date: 20110106
  Transmission Date: 20110831
  Serious: Yes (Hospitalization)
  Sender: FDA-Public Use
  Company Number: DE-SANOFI-AVENTIS-2010SA010893

PATIENT
  Age: 56 Year
  Sex: Male
  Weight: 119 kg

DRUGS (15)
  1. NOVALGIN [Concomitant]
     Dates: start: 20091230, end: 20100104
  2. KETOPROFEN [Concomitant]
  3. OXALIPLATIN [Suspect]
     Route: 042
     Dates: start: 20100208, end: 20100208
  4. BLOPRESS [Concomitant]
  5. ALL OTHER THERAPEUTIC PRODUCTS [Concomitant]
     Dates: start: 20091230
  6. LEUCOVORIN CALCIUM [Suspect]
     Route: 042
     Dates: start: 20100208, end: 20100208
  7. NITROGLYCERIN [Concomitant]
     Dates: start: 20100125, end: 20100125
  8. EBRANTIL [Concomitant]
     Dates: start: 20100125, end: 20100125
  9. ANEMET [Concomitant]
     Dates: start: 20100111, end: 20100125
  10. IBUPROFEN [Concomitant]
     Dates: start: 20100125, end: 20100125
  11. OXALIPLATIN [Suspect]
     Route: 042
     Dates: start: 20100111, end: 20100111
  12. 5-FU [Suspect]
     Route: 042
     Dates: start: 20100208, end: 20100208
  13. DEXAMETHASONE [Concomitant]
     Dates: start: 20100111, end: 20100125
  14. AFLIBERCEPT [Suspect]
     Route: 042
     Dates: start: 20100111, end: 20100111
  15. AFLIBERCEPT [Suspect]
     Route: 042
     Dates: start: 20100208, end: 20100208

REACTIONS (1)
  - VENTRICULAR ARRHYTHMIA [None]
